FAERS Safety Report 9255302 (Version 2)
Quarter: 2013Q2

REPORT INFORMATION
  Report Type: Spontaneous
  Country: DK (occurrence: DK)
  Receive Date: 20130425
  Receipt Date: 20130619
  Transmission Date: 20140414
  Serious: Yes (Hospitalization)
  Sender: FDA-Public Use
  Company Number: DK-BAYER-2013-048573

PATIENT
  Age: 43 Year
  Sex: Female

DRUGS (2)
  1. GADOVIST [Suspect]
     Indication: NUCLEAR MAGNETIC RESONANCE IMAGING
     Dosage: 7.5 ML, ONCE
     Dates: start: 20130415, end: 20130415
  2. GADOVIST [Suspect]
     Indication: NUCLEAR MAGNETIC RESONANCE IMAGING
     Dosage: 7.5 ML, ONCE
     Dates: start: 20130416, end: 20130416

REACTIONS (4)
  - Paraesthesia [Unknown]
  - Micturition disorder [Unknown]
  - Hypotension [Unknown]
  - Hypersensitivity [Unknown]
